FAERS Safety Report 6711148-0 (Version None)
Quarter: 2010Q2

REPORT INFORMATION
  Report Type: 
  Country: None (occurrence: None)
  Receive Date: 20100505
  Receipt Date: 20100426
  Transmission Date: 20101027
  Serious: Yes (Life-Threatening, Hospitalization)
  Sender: FDA-Public Use
  Company Number: ES-WYE-H14863910

PATIENT
  Age: 82 Year
  Sex: Female

DRUGS (4)
  1. AMIODARONE HCL [Suspect]
     Indication: ATRIAL FIBRILLATION
     Dosage: 200 MG TABLET (DOSE AND REGIMEN UNKNOWN)
     Route: 048
  2. ALDOCUMAR [Interacting]
     Indication: ATRIAL FIBRILLATION
     Dosage: UNKNOWN
     Route: 048
     Dates: end: 20090801
  3. VOLTAREN [Interacting]
     Indication: ATRIAL FIBRILLATION
     Route: 048
     Dates: start: 20090711, end: 20090801
  4. DIGOXIN [Interacting]
     Indication: HYPERURICAEMIA
     Dosage: UNKNOWN
     Route: 048

REACTIONS (3)
  - DRUG INTERACTION [None]
  - RECTAL HAEMORRHAGE [None]
  - UPPER GASTROINTESTINAL HAEMORRHAGE [None]
